FAERS Safety Report 18518404 (Version 1)
Quarter: 2020Q4

REPORT INFORMATION
  Report Type: Spontaneous
  Country: US (occurrence: US)
  Receive Date: 20201118
  Receipt Date: 20201118
  Transmission Date: 20210114
  Serious: Yes (Other)
  Sender: FDA-Public Use
  Company Number: NVSC2020US306227

PATIENT
  Age: 6 Month
  Sex: Female

DRUGS (1)
  1. DABRAFENIB [Suspect]
     Active Substance: DABRAFENIB
     Indication: LANGERHANS^ CELL HISTIOCYTOSIS
     Dosage: UNK
     Route: 065
     Dates: start: 201405, end: 201604

REACTIONS (3)
  - Product use in unapproved indication [Unknown]
  - Epstein-Barr virus associated lymphoma [Unknown]
  - Product use issue [Unknown]
